FAERS Safety Report 19243899 (Version 1)
Quarter: 2021Q2

REPORT INFORMATION
  Report Type: Spontaneous
  Country: BR (occurrence: BR)
  Receive Date: 20210511
  Receipt Date: 20210511
  Transmission Date: 20210717
  Serious: Yes (Other)
  Sender: FDA-Public Use
  Company Number: BR-ABBVIE-21K-020-3896861-00

PATIENT
  Age: 62 Year
  Sex: Male
  Weight: 68 kg

DRUGS (4)
  1. HUMIRA [Suspect]
     Active Substance: ADALIMUMAB
     Indication: UVEITIS
  2. HUMIRA [Suspect]
     Active Substance: ADALIMUMAB
     Indication: ANKYLOSING SPONDYLITIS
     Route: 065
     Dates: start: 201409
  3. HUMIRA [Suspect]
     Active Substance: ADALIMUMAB
     Indication: CROHN^S DISEASE
  4. OMEPRAZOLE. [Concomitant]
     Active Substance: OMEPRAZOLE
     Indication: GASTRITIS
     Dosage: AT NIGHT
     Route: 048
     Dates: start: 1996

REACTIONS (10)
  - Muscle spasms [Not Recovered/Not Resolved]
  - Anal haemorrhage [Not Recovered/Not Resolved]
  - Musculoskeletal stiffness [Not Recovered/Not Resolved]
  - Prostatomegaly [Not Recovered/Not Resolved]
  - Intestinal haemorrhage [Not Recovered/Not Resolved]
  - Bone disorder [Unknown]
  - Arthralgia [Not Recovered/Not Resolved]
  - Oedema [Unknown]
  - Hypertension [Not Recovered/Not Resolved]
  - Therapeutic response shortened [Unknown]

NARRATIVE: CASE EVENT DATE: 2017
